FAERS Safety Report 4796039-7 (Version None)
Quarter: 2005Q4

REPORT INFORMATION
  Report Type: 
  Country: None (occurrence: None)
  Receive Date: 20051012
  Receipt Date: 20050825
  Transmission Date: 20060501
  Serious: Yes (Hospitalization)
  Sender: FDA-Public Use
  Company Number: FR-SANOFI-SYNTHELABO-A02200502305

PATIENT
  Sex: Male

DRUGS (4)
  1. PLAVIX [Suspect]
     Indication: MYOCARDIAL INFARCTION
     Dosage: UNK
     Route: 048
     Dates: start: 20030101, end: 20050401
  2. SECTRAL [Concomitant]
     Indication: MYOCARDIAL INFARCTION
     Route: 048
     Dates: start: 20030101
  3. AMLOR [Concomitant]
     Route: 048
     Dates: start: 20030101
  4. TAHOR [Concomitant]
     Route: 048
     Dates: start: 20030101

REACTIONS (3)
  - ACTIVATED PARTIAL THROMBOPLASTIN TIME SHORTENED [None]
  - HAEMATURIA [None]
  - PROTHROMBIN LEVEL DECREASED [None]
